FAERS Safety Report 7992185-5 (Version None)
Quarter: 2011Q4

REPORT INFORMATION
  Report Type: 
  Country: None (occurrence: None)
  Receive Date: 20111219
  Receipt Date: 20101206
  Transmission Date: 20120403
  Serious: No
  Sender: FDA-Public Use
  Company Number: US-ASTRAZENECA-2010SE45130

PATIENT
  Sex: Male
  Weight: 70.3 kg

DRUGS (3)
  1. CRESTOR [Suspect]
     Indication: HYPERLIPIDAEMIA
     Route: 048
     Dates: end: 20100101
  2. ZETIA [Concomitant]
     Indication: HYPERLIPIDAEMIA
  3. VERAPAMIL EXTENDED-RELEASE [Concomitant]
     Indication: SUPRAVENTRICULAR TACHYCARDIA

REACTIONS (2)
  - INCREASED TENDENCY TO BRUISE [None]
  - ECCHYMOSIS [None]
